FAERS Safety Report 10328549 (Version 2)
Quarter: 2014Q3

REPORT INFORMATION
  Report Type: Spontaneous
  Country: IT (occurrence: IT)
  Receive Date: 20140721
  Receipt Date: 20140722
  Transmission Date: 20150326
  Serious: Yes (Hospitalization)
  Sender: FDA-Public Use
  Company Number: IT-MERCK-1407ITA006409

PATIENT
  Age: 50 Year
  Sex: Male
  Weight: 152 kg

DRUGS (1)
  1. ESMERON [Suspect]
     Active Substance: ROCURONIUM BROMIDE
     Indication: NEUROMUSCULAR BLOCKING THERAPY
     Dosage: FREQUENCY: TOTAL
     Route: 042
     Dates: start: 20140612, end: 20140612

REACTIONS (1)
  - Neuromuscular blocking therapy [Recovered/Resolved]

NARRATIVE: CASE EVENT DATE: 20140612
